FAERS Safety Report 7074683-4 (Version None)
Quarter: 2010Q4

REPORT INFORMATION
  Report Type: 
  Country: None (occurrence: None)
  Receive Date: 20101029
  Receipt Date: 20101018
  Transmission Date: 20110411
  Serious: Yes (Other)
  Sender: FDA-Public Use
  Company Number: B0681928A

PATIENT
  Sex: Male

DRUGS (3)
  1. ISRADIPINE [Suspect]
     Indication: HYPERTENSION
     Dosage: 2.5MG PER DAY
     Route: 065
     Dates: start: 20030101, end: 20080101
  2. SIMVASTATIN [Concomitant]
     Route: 065
  3. CLOPIDOGREL [Concomitant]
     Route: 065

REACTIONS (3)
  - GAIT DISTURBANCE [None]
  - MUSCULOSKELETAL STIFFNESS [None]
  - OEDEMA PERIPHERAL [None]
